FAERS Safety Report 4519769-0 (Version None)
Quarter: 2004Q4

REPORT INFORMATION
  Report Type: 
  Country: None (occurrence: None)
  Receive Date: 20041203
  Receipt Date: 20041203
  Transmission Date: 20050328
  Serious: No
  Sender: FDA-Public Use
  Company Number: None

PATIENT
  Age: 52 Year
  Sex: Female
  Weight: 52.1637 kg

DRUGS (6)
  1. LIPITOR [Suspect]
     Indication: DIABETES MELLITUS
     Dosage: 1 TAB PER DAY ORALLY
     Route: 048
     Dates: start: 20040201, end: 20041031
  2. INSULIN INJECTIONS REGULAR NPH [Concomitant]
  3. MULTI-VITAMIN [Concomitant]
  4. CALCIUM [Concomitant]
  5. BENADRYL [Concomitant]
  6. ASPIRIN [Concomitant]

REACTIONS (7)
  - ARTHRALGIA [None]
  - DRUG INEFFECTIVE [None]
  - EYE IRRITATION [None]
  - JOINT SWELLING [None]
  - MYALGIA [None]
  - PAIN [None]
  - TENDERNESS [None]
